FAERS Safety Report 8887309 (Version 1)
Quarter: 2012Q4

REPORT INFORMATION
  Report Type: 
  Country: US (occurrence: US)
  Receive Date: 20121105
  Receipt Date: 20121105
  Transmission Date: 20130627
  Serious: Yes (Life-Threatening, Hospitalization)
  Sender: FDA-Public Use
  Company Number: US-BAYER-2012-115418

PATIENT
  Age: 17 Year
  Sex: Male

DRUGS (1)
  1. DIPHENHYDRAMINE HYDROCHLORIDE [Suspect]
     Dosage: 2000 mg, ONCE
     Route: 048

REACTIONS (7)
  - Electrocardiogram QT prolonged [Recovered/Resolved]
  - Bundle branch block right [Recovered/Resolved]
  - Toxicity to various agents [Recovered/Resolved]
  - Tachyarrhythmia [Recovered/Resolved]
  - Tachypnoea [Recovered/Resolved]
  - Grand mal convulsion [Recovered/Resolved]
  - Metabolic acidosis [Recovered/Resolved]
